FAERS Safety Report 20847919 (Version 1)
Quarter: 2022Q2

REPORT INFORMATION
  Report Type: Spontaneous
  Country: DE (occurrence: DE)
  Receive Date: 20220519
  Receipt Date: 20220519
  Transmission Date: 20220721
  Serious: Yes (Hospitalization)
  Sender: FDA-Public Use
  Company Number: DE-STRIDES ARCOLAB LIMITED-2022SP005507

PATIENT
  Age: 72 Year
  Sex: Male

DRUGS (8)
  1. PREDNISOLONE [Suspect]
     Active Substance: PREDNISOLONE
     Indication: Factor VIII deficiency
     Dosage: 100 MILLIGRAM PER DAY
     Route: 048
  2. CYCLOPHOSPHAMIDE [Suspect]
     Active Substance: CYCLOPHOSPHAMIDE
     Indication: Factor VIII deficiency
     Dosage: 150 MILLIGRAM PER DAY FROM DAY 18 ONWARDS
     Route: 048
  3. RITUXIMAB [Suspect]
     Active Substance: RITUXIMAB
     Indication: Factor VIII deficiency
     Dosage: 375 MILLIGRAM/SQ. METER, ONCE A WEEK , WEEKLY ON DAY 27
     Route: 065
  4. COAGULATION FACTOR VII HUMAN [Concomitant]
     Active Substance: COAGULATION FACTOR VII HUMAN
     Indication: Factor VIII deficiency
     Dosage: UNK
     Route: 065
  5. COAGULATION FACTOR VII HUMAN [Concomitant]
     Active Substance: COAGULATION FACTOR VII HUMAN
     Dosage: UNK, RESTARTED WITH A CAREFUL TAPER
     Route: 065
  6. COAGULATION FACTOR VII HUMAN [Concomitant]
     Active Substance: COAGULATION FACTOR VII HUMAN
     Dosage: UNK, REDUCED TO 20.6BU ON DAY 21
     Route: 065
  7. VITAMIN D NOS [Concomitant]
     Active Substance: VITAMIN D NOS
     Indication: Osteoporosis
     Dosage: UNK
     Route: 065
  8. COTRIMOXAZOLE [Concomitant]
     Active Substance: SULFAMETHOXAZOLE\TRIMETHOPRIM
     Indication: Antifungal prophylaxis
     Dosage: UNK
     Route: 065

REACTIONS (3)
  - Pleomorphic malignant fibrous histiocytoma [Recovered/Resolved]
  - Unmasking of previously unidentified disease [Unknown]
  - Off label use [Unknown]
